FAERS Safety Report 20795731 (Version 1)
Quarter: 2022Q2

REPORT INFORMATION
  Report Type: Spontaneous
  Country: CN (occurrence: None)
  Receive Date: 20220506
  Receipt Date: 20220506
  Transmission Date: 20220721
  Serious: Yes (Hospitalization, Other)
  Sender: FDA-Public Use
  Company Number: 2022A172299

PATIENT
  Age: 20089 Day
  Sex: Female

DRUGS (2)
  1. OSIMERTINIB MESYLATE [Suspect]
     Active Substance: OSIMERTINIB MESYLATE
     Indication: Neoplasm malignant
     Dosage: 80.00 MG,ONCE EVERY ONE DAY,
     Route: 048
     Dates: start: 20211203, end: 20211222
  2. BEVACIZUMAB [Suspect]
     Active Substance: BEVACIZUMAB
     Indication: Neoplasm malignant
     Dosage: 360.00 MG, ONCE EVERY ONE DAY,
     Route: 041
     Dates: start: 20211203, end: 20211203

REACTIONS (2)
  - Myelosuppression [Unknown]
  - Liver injury [Unknown]

NARRATIVE: CASE EVENT DATE: 20211223
